FAERS Safety Report 4592712-4 (Version None)
Quarter: 2005Q1

REPORT INFORMATION
  Report Type: 
  Country: None (occurrence: None)
  Receive Date: 20050222
  Receipt Date: 20050214
  Transmission Date: 20050727
  Serious: No
  Sender: FDA-Public Use
  Company Number: 05H-087-0290776-00

PATIENT
  Age: 78 Year
  Sex: Female

DRUGS (2)
  1. HEPARIN SODIUM [Suspect]
     Indication: ANTICOAGULANT THERAPY
  2. LIDOCAINE [Concomitant]

REACTIONS (4)
  - IATROGENIC INJURY [None]
  - POST PROCEDURAL COMPLICATION [None]
  - PUNCTURE SITE REACTION [None]
  - VASCULAR PSEUDOANEURYSM [None]
